FAERS Safety Report 19900172 (Version 1)
Quarter: 2021Q3

REPORT INFORMATION
  Report Type: Spontaneous
  Country: US (occurrence: US)
  Receive Date: 20210930
  Receipt Date: 20210930
  Transmission Date: 20211014
  Serious: Yes (Other)
  Sender: FDA-Public Use
  Company Number: None

PATIENT
  Age: 32 Year
  Sex: Male

DRUGS (2)
  1. DUPIXENT [Suspect]
     Active Substance: DUPILUMAB
     Indication: DERMATITIS ALLERGIC
     Dosage: ?          OTHER FREQUENCY:EVERY OTHER WEEK;?
     Route: 058
     Dates: start: 20210812
  2. DUPIXENT [Concomitant]
     Active Substance: DUPILUMAB
     Dates: start: 20210812

REACTIONS (5)
  - Depressed mood [None]
  - Arthralgia [None]
  - Mood swings [None]
  - Joint swelling [None]
  - Anger [None]

NARRATIVE: CASE EVENT DATE: 20210929
